FAERS Safety Report 5396200-7 (Version None)
Quarter: 2007Q3

REPORT INFORMATION
  Report Type: 
  Country: None (occurrence: None)
  Receive Date: 20070725
  Receipt Date: 20070718
  Transmission Date: 20080115
  Serious: Yes (Other)
  Sender: FDA-Public Use
  Company Number: PHBS2007BR12175

PATIENT
  Age: 74 Year
  Sex: Female
  Weight: 70 kg

DRUGS (6)
  1. FORASEQ [Suspect]
     Indication: ASTHMA
     Dosage: 2 INHALATIONS/DAY
  2. BUDECORT [Concomitant]
     Indication: NASAL DRYNESS
     Dosage: 2 INHALATIONS/DAY
  3. LOSARTAN POTASSIUM [Concomitant]
     Indication: HYPERTENSION
     Dosage: 1 TAB/DAY
     Route: 048
  4. DIAZEPAM [Concomitant]
     Dosage: 1 TAB/DAY
     Route: 048
  5. ANITRIL [Concomitant]
     Indication: DEPRESSION
     Dosage: 1 TAB/DAY
     Route: 048
  6. OMEPRAZOLE [Concomitant]
     Dosage: 1 TAB/DAY
     Route: 048

REACTIONS (4)
  - DRUG DOSE OMISSION [None]
  - DYSPNOEA [None]
  - FALL [None]
  - LOWER LIMB FRACTURE [None]
